FAERS Safety Report 7332971-8 (Version None)
Quarter: 2011Q1

REPORT INFORMATION
  Report Type: 
  Country: None (occurrence: None)
  Receive Date: 20110304
  Receipt Date: 20110226
  Transmission Date: 20110831
  Serious: Yes (Hospitalization, Other)
  Sender: FDA-Public Use
  Company Number: BR-SHIRE-ALL1-2010-04844

PATIENT
  Age: 19 Year
  Sex: Male

DRUGS (1)
  1. ELAPRASE [Suspect]
     Indication: MUCOPOLYSACCHARIDOSIS II
     Dosage: UNK MG/KG, UNKNOWN, INFUSION DURATION 2 TO 2 1/2 HOURS
     Route: 041
     Dates: start: 20080101

REACTIONS (10)
  - URINARY TRACT INFECTION [None]
  - PALLOR [None]
  - TACHYCARDIA [None]
  - HYPERHIDROSIS [None]
  - DEHYDRATION [None]
  - INFUSION RELATED REACTION [None]
  - BRADYCARDIA [None]
  - CARDIAC ARREST [None]
  - BRONCHIAL SECRETION RETENTION [None]
  - HYPOTONIA [None]
